FAERS Safety Report 8065175-4 (Version None)
Quarter: 2012Q1

REPORT INFORMATION
  Report Type: 
  Country: None (occurrence: None)
  Receive Date: 20120124
  Receipt Date: 20120116
  Transmission Date: 20120608
  Serious: Yes (Other)
  Sender: FDA-Public Use
  Company Number: US-BAYER-2012-004982

PATIENT
  Age: 27 Year
  Sex: Female

DRUGS (1)
  1. YAZ [Suspect]
     Dosage: UNK
     Dates: start: 20080501, end: 20090301

REACTIONS (4)
  - EMOTIONAL DISTRESS [None]
  - INJURY [None]
  - CHOLECYSTECTOMY [None]
  - PAIN [None]
